FAERS Safety Report 24449953 (Version 1)
Quarter: 2024Q4

REPORT INFORMATION
  Report Type: Spontaneous
  Country: CZ (occurrence: CZ)
  Receive Date: 20241017
  Receipt Date: 20241017
  Transmission Date: 20250115
  Serious: Yes (Hospitalization, Other)
  Sender: BRISTOL-MYERS SQUIBB COMPANY
  Company Number: None

PATIENT
  Age: 56 Year
  Sex: Male
  Weight: 76 kg

DRUGS (2)
  1. OPDIVO [Suspect]
     Active Substance: NIVOLUMAB
     Indication: Renal cancer
     Dosage: IPILIMUMAB 1 MG/KG NIVOLUMAB + 3 MG/KG EVERY 3 WEEKS
     Dates: start: 20230802, end: 20231005
  2. YERVOY [Suspect]
     Active Substance: IPILIMUMAB
     Indication: Renal cancer
     Dosage: IPILIMUMAB 1 MG/KG NIVOLUMAB + 3 MG/KG EVERY 3 WEEKS
     Route: 042
     Dates: start: 20230802, end: 20231005

REACTIONS (3)
  - Renal failure [Recovered/Resolved]
  - Colitis ulcerative [Recovered/Resolved]
  - Off label use [Unknown]

NARRATIVE: CASE EVENT DATE: 20231020
